FAERS Safety Report 11359925 (Version 1)
Quarter: 2015Q3

REPORT INFORMATION
  Report Type: Other
  Country: DE (occurrence: DE)
  Receive Date: 20150810
  Receipt Date: 20150810
  Transmission Date: 20151125
  Serious: No
  Sender: FDA-Public Use
  Company Number: DE-LUPIN PHARMACEUTICALS INC.-2015-01640

PATIENT
  Age: 17 Month

DRUGS (1)
  1. IRBESARTAN. [Suspect]
     Active Substance: IRBESARTAN
     Indication: PRODUCT USED FOR UNKNOWN INDICATION
     Dosage: 5.8 MG/KG BODY WEIGHT
     Route: 048

REACTIONS (2)
  - Hypotension [Recovered/Resolved]
  - Accidental poisoning [Unknown]
